FAERS Safety Report 9551135 (Version 1)
Quarter: 2013Q3

REPORT INFORMATION
  Report Type: Spontaneous
  Country: US (occurrence: US)
  Receive Date: 20130925
  Receipt Date: 20130925
  Transmission Date: 20140515
  Serious: No
  Sender: FDA-Public Use
  Company Number: US-BIOGENIDEC-2013BI089274

PATIENT
  Sex: Female

DRUGS (7)
  1. TYSABRI [Suspect]
     Indication: MULTIPLE SCLEROSIS
     Route: 042
     Dates: start: 20130405
  2. AVONEX [Concomitant]
     Indication: MULTIPLE SCLEROSIS
     Route: 030
  3. FLORINEF [Concomitant]
     Indication: HYPOTENSION
  4. SUMATRIPTAN [Concomitant]
     Indication: MIGRAINE
  5. GABAPENTIN [Concomitant]
  6. ZOLOFT [Concomitant]
     Indication: DEPRESSION
  7. BACLOFEN [Concomitant]
     Indication: MUSCLE SPASTICITY

REACTIONS (2)
  - Intention tremor [Unknown]
  - Fatigue [Unknown]
